FAERS Safety Report 15462684 (Version 1)
Quarter: 2018Q4

REPORT INFORMATION
  Report Type: Spontaneous
  Country: PT (occurrence: PT)
  Receive Date: 20181004
  Receipt Date: 20181004
  Transmission Date: 20190204
  Serious: Yes (Disabling, Other)
  Sender: FDA-Public Use
  Company Number: PT-NALPROPION PHARMACEUTICALS INC-2055666

PATIENT
  Age: 47 Year
  Sex: Female
  Weight: 69.98 kg

DRUGS (2)
  1. CONTRAVE [Suspect]
     Active Substance: BUPROPION HYDROCHLORIDE\NALTREXONE HYDROCHLORIDE
     Indication: OVERWEIGHT
     Route: 048
     Dates: start: 20180829, end: 20180905
  2. XANAX [Concomitant]
     Active Substance: ALPRAZOLAM
     Route: 065
     Dates: start: 2017

REACTIONS (5)
  - Tobacco user [Not Recovered/Not Resolved]
  - Increased appetite [Not Recovered/Not Resolved]
  - Emotional disorder [Not Recovered/Not Resolved]
  - Derealisation [Unknown]
  - Drug ineffective [Not Recovered/Not Resolved]

NARRATIVE: CASE EVENT DATE: 20180830
